FAERS Safety Report 7403374-2 (Version None)
Quarter: 2011Q2

REPORT INFORMATION
  Report Type: 
  Country: None (occurrence: None)
  Receive Date: 20110408
  Receipt Date: 20110401
  Transmission Date: 20111010
  Serious: Yes (Hospitalization)
  Sender: FDA-Public Use
  Company Number: A0897046A

PATIENT
  Age: 73 Year
  Sex: Male

DRUGS (10)
  1. CRESTOR [Concomitant]
  2. LASIX [Concomitant]
  3. MIRALAX [Concomitant]
  4. CLARINEX [Concomitant]
  5. TOPROL-XL [Concomitant]
  6. GLYNASE [Concomitant]
  7. AVANDIA [Suspect]
     Indication: TYPE 2 DIABETES MELLITUS
     Dosage: 4MG PER DAY
     Route: 048
     Dates: start: 20021204, end: 20070415
  8. PRILOSEC [Concomitant]
  9. ASPIRIN [Concomitant]
  10. ALTACE [Concomitant]

REACTIONS (4)
  - ANGINA UNSTABLE [None]
  - CORONARY ARTERY DISEASE [None]
  - ARTERIOSCLEROSIS [None]
  - CARDIOVASCULAR DISORDER [None]
